FAERS Safety Report 8682468 (Version 3)
Quarter: 2014Q1

REPORT INFORMATION
  Report Type: Spontaneous
  Country: US (occurrence: US)
  Receive Date: 20120725
  Receipt Date: 20140207
  Transmission Date: 20141002
  Serious: Yes (Life-Threatening, Hospitalization)
  Sender: FDA-Public Use
  Company Number: US-ASTRAZENECA-2012SE48185

PATIENT
  Age: 49 Year
  Sex: Female
  Weight: 103.4 kg

DRUGS (13)
  1. CRESTOR [Suspect]
     Indication: BLOOD TRIGLYCERIDES INCREASED
     Route: 048
     Dates: start: 2010, end: 20131224
  2. CRESTOR [Suspect]
     Indication: BLOOD CHOLESTEROL INCREASED
     Route: 048
     Dates: start: 2010, end: 20131224
  3. CRESTOR [Suspect]
     Indication: BLOOD TRIGLYCERIDES INCREASED
     Route: 048
     Dates: start: 2011, end: 201312
  4. CRESTOR [Suspect]
     Indication: BLOOD CHOLESTEROL INCREASED
     Route: 048
     Dates: start: 2011, end: 201312
  5. CLONIDINE [Concomitant]
     Indication: BLOOD PRESSURE MANAGEMENT
     Route: 048
     Dates: start: 2009
  6. DILTIAZEM [Concomitant]
     Indication: HEART RATE IRREGULAR
     Route: 048
     Dates: start: 2011
  7. FERROUS SULFATE [Concomitant]
     Indication: MINERAL SUPPLEMENTATION
     Route: 048
     Dates: start: 2009
  8. METOPROLOL [Concomitant]
     Indication: BLOOD CHOLESTEROL ABNORMAL
     Dosage: GENERIC FOR LOPRESSOR, 50 MG, EVERY 12 HOURS
     Route: 048
     Dates: start: 2009
  9. TRAMADOL HCL [Concomitant]
     Indication: MUSCULOSKELETAL CHEST PAIN
     Route: 048
     Dates: start: 2009
  10. TRAMADOL HCL [Concomitant]
     Indication: MUSCULOSKELETAL CHEST PAIN
     Route: 048
  11. VITAMINS [Concomitant]
     Indication: VITAMIN SUPPLEMENTATION
     Route: 048
     Dates: start: 2009
  12. FISH OIL [Concomitant]
     Indication: VITAMIN SUPPLEMENTATION
     Route: 048
     Dates: start: 2009
  13. DILTVEN [Concomitant]

REACTIONS (9)
  - Cardiac arrest [Unknown]
  - Pulmonary oedema [Unknown]
  - Hypertension [Unknown]
  - Joint swelling [Unknown]
  - Pain in extremity [Unknown]
  - Agitation [Unknown]
  - Pain [Unknown]
  - Skin lesion [Unknown]
  - Drug dose omission [Unknown]
